FAERS Safety Report 8986255 (Version 3)
Quarter: 2013Q2

REPORT INFORMATION
  Report Type: Spontaneous
  Country: IE (occurrence: IE)
  Receive Date: 20121226
  Receipt Date: 20130420
  Transmission Date: 20140414
  Serious: Yes (Hospitalization)
  Sender: FDA-Public Use
  Company Number: IE-B.I. PHARMACEUTICALS,INC./RIDGEFIELD-2012-UK-01957UK

PATIENT
  Age: 81 Year
  Sex: Female
  Weight: 65 kg

DRUGS (8)
  1. PRADAXA [Suspect]
     Indication: ATRIAL FIBRILLATION
     Dosage: 220 MG
     Dates: start: 20120930, end: 20121121
  2. PRADAXA [Suspect]
     Dosage: 220 MG
     Dates: start: 20121123, end: 20121124
  3. SODIUM VALPROATE [Concomitant]
     Dosage: 800 MG
  4. DIGOXIN [Concomitant]
     Indication: ATRIAL FIBRILLATION
     Dosage: 125 MCG
  5. GALFER [Concomitant]
     Indication: ANAEMIA
     Dosage: 2 ANZ
  6. ESOMEPRAZOLE [Concomitant]
     Indication: GASTRITIS
     Dosage: 40 MG
  7. BUMETANIDE [Concomitant]
     Dosage: 1 MG
  8. BISOPROLOL [Concomitant]
     Indication: ATRIAL FIBRILLATION
     Dosage: 5 MG

REACTIONS (3)
  - Peripheral ischaemia [Recovered/Resolved]
  - Anaemia [Recovered/Resolved]
  - Drug ineffective [Recovered/Resolved]
